FAERS Safety Report 12045863 (Version 2)
Quarter: 2016Q3

REPORT INFORMATION
  Report Type: Spontaneous
  Country: PL (occurrence: PL)
  Receive Date: 20160208
  Receipt Date: 20160811
  Transmission Date: 20161109
  Serious: Yes (Death)
  Sender: FDA-Public Use
  Company Number: PL-BRACCO-000513

PATIENT
  Age: 75 Year
  Sex: Male

DRUGS (1)
  1. MULTIHANCE [Suspect]
     Active Substance: GADOBENATE DIMEGLUMINE
     Indication: NUCLEAR MAGNETIC RESONANCE IMAGING
     Route: 042
     Dates: start: 20160129, end: 20160129

REACTIONS (6)
  - Cardiac arrest [Fatal]
  - Aphasia [Unknown]
  - Headache [Unknown]
  - Feeling hot [Unknown]
  - Cold sweat [Unknown]
  - Nystagmus [Unknown]

NARRATIVE: CASE EVENT DATE: 20160129
